FAERS Safety Report 15131135 (Version 5)
Quarter: 2018Q3

REPORT INFORMATION
  Report Type: Spontaneous
  Country: US (occurrence: US)
  Receive Date: 20180711
  Receipt Date: 20180917
  Transmission Date: 20181010
  Serious: Yes (Other)
  Sender: FDA-Public Use
  Company Number: US-PFIZER INC-2018278460

PATIENT
  Age: 5 Year
  Sex: Male

DRUGS (1)
  1. DILANTIN [Suspect]
     Active Substance: PHENYTOIN
     Indication: ATTENTION DEFICIT/HYPERACTIVITY DISORDER
     Dosage: 1 MG, 2X/DAY (2 DOSES ONE AT BREAKFAST AND ONE AT LUNCH TIME)
     Route: 048
     Dates: start: 196902, end: 197212

REACTIONS (12)
  - Suicidal ideation [Unknown]
  - Depression [Unknown]
  - Bedridden [Recovered/Resolved]
  - Dyspepsia [Recovered/Resolved]
  - Burning sensation [Recovered/Resolved]
  - Genital burning sensation [Recovered/Resolved]
  - Product use in unapproved indication [Recovered/Resolved]
  - Abnormal behaviour [Unknown]
  - Vomiting [Recovered/Resolved]
  - Inappropriate affect [Recovered/Resolved]
  - Somnolence [Recovered/Resolved]
  - Brain injury [Recovered/Resolved]

NARRATIVE: CASE EVENT DATE: 196902
